FAERS Safety Report 8925221 (Version 3)
Quarter: 2013Q4

REPORT INFORMATION
  Report Type: Spontaneous
  Country: US (occurrence: US)
  Receive Date: 20121126
  Receipt Date: 20131226
  Transmission Date: 20140711
  Serious: Yes (Hospitalization, Other)
  Sender: FDA-Public Use
  Company Number: US-BAYER-2012-121472

PATIENT
  Age: 34 Year
  Sex: Female
  Weight: 68.03 kg

DRUGS (4)
  1. YAZ [Suspect]
     Indication: CONTRACEPTION
     Dosage: UNK
     Dates: start: 2009, end: 2011
  2. YAZ [Suspect]
     Indication: MENSTRUATION IRREGULAR
  3. NEXIUM [Concomitant]
     Indication: NAUSEA
     Dosage: 40 MG, PRN
     Route: 048
     Dates: start: 20100707
  4. NEXIUM [Concomitant]
     Indication: DYSPEPSIA

REACTIONS (8)
  - Cholecystectomy [None]
  - Cholecystitis chronic [None]
  - Injury [None]
  - Pain [None]
  - Emotional distress [None]
  - Anxiety [None]
  - Psychological trauma [None]
  - Fear [None]
